FAERS Safety Report 8835156 (Version 1)
Quarter: 2012Q4

REPORT INFORMATION
  Report Type: 
  Country: ES (occurrence: ES)
  Receive Date: 20121011
  Receipt Date: 20121011
  Transmission Date: 20130627
  Serious: Yes (Other)
  Sender: FDA-Public Use
  Company Number: ES-PFIZER INC-2012223394

PATIENT
  Age: 78 Year
  Sex: Female

DRUGS (5)
  1. NEURONTIN [Suspect]
     Indication: NEURALGIA
     Dosage: UNK
     Route: 048
     Dates: start: 201209, end: 20120909
  2. NEURONTIN [Suspect]
     Dosage: 300 mg, 2x/day
     Route: 048
     Dates: start: 20120910
  3. SIMVASTATIN [Concomitant]
     Dosage: UNK
  4. DIOVAN (VALSARTAN) [Concomitant]
     Dosage: UNK
  5. TRYPTIZOL [Concomitant]
     Dosage: UNK

REACTIONS (5)
  - Mental impairment [Not Recovered/Not Resolved]
  - Dizziness [Recovered/Resolved]
  - Photosensitivity reaction [Unknown]
  - Erythema [Recovered/Resolved]
  - Skin exfoliation [Not Recovered/Not Resolved]
